FAERS Safety Report 8414477-8 (Version None)
Quarter: 2012Q2

REPORT INFORMATION
  Report Type: 
  Country: None (occurrence: None)
  Receive Date: 20120605
  Receipt Date: 20120529
  Transmission Date: 20120825
  Serious: Yes (Hospitalization, Other)
  Sender: FDA-Public Use
  Company Number: US-BAYER-2012-053897

PATIENT
  Sex: Female

DRUGS (15)
  1. ASPIRIN [Suspect]
     Dosage: DAILY DOSE 81 MG
  2. NORVASC [Concomitant]
     Dosage: DAILY DOSE 10 MG
  3. RANEXA [Concomitant]
     Dosage: 500 MG, BID
  4. VICODIN [Concomitant]
     Dosage: 5/525 MG PRN
  5. RANITIDINE [Concomitant]
  6. SPIRONOLACTONE [Concomitant]
     Dosage: DAILY DOSE 25 MG
  7. ATORVASTATIN CALCIUM [Concomitant]
     Dosage: DAILY DOSE 40 MG
  8. NITROGLYCERIN [Concomitant]
     Dosage: UNK UNK, PRN
  9. PLAVIX [Concomitant]
     Dosage: DAILY DOSE 75 MG
  10. RANEXA [Concomitant]
     Dosage: 1000 MG, BID
  11. PROTONIX [Concomitant]
  12. NORVASC [Concomitant]
     Dosage: DAILY DOSE 5 MG
  13. CARVEDILOL [Concomitant]
     Dosage: 25 MG, BID
  14. IMDUR [Concomitant]
     Dosage: DAILY DOSE 60 MG
  15. ACETAMINOPHEN [Concomitant]
     Dosage: UNK UNK, PRN

REACTIONS (6)
  - HYPERTENSION [None]
  - DRUG HYPERSENSITIVITY [None]
  - CORONARY ARTERY DISEASE [None]
  - CHEST PAIN [None]
  - DIABETES MELLITUS [None]
  - INTRACRANIAL ANEURYSM [None]
